FAERS Safety Report 4512020-7 (Version None)
Quarter: 2004Q4

REPORT INFORMATION
  Report Type: 
  Country: None (occurrence: None)
  Receive Date: 20041129
  Receipt Date: 20040921
  Transmission Date: 20050328
  Serious: No
  Sender: FDA-Public Use
  Company Number: US-BRISTOL-MYERS SQUIBB COMPANY-12708095

PATIENT
  Age: 14 Year
  Sex: Male
  Weight: 26 kg

DRUGS (3)
  1. SUSTIVA [Suspect]
     Indication: HIV INFECTION
     Dosage: VIA G-TUBE, THERAPY INTERRUPTED DUE TO THE EVENT
     Route: 050
  2. TENOFOVIR [Concomitant]
  3. RITONAVIR [Concomitant]

REACTIONS (2)
  - PRURITUS [None]
  - RASH MACULAR [None]
